FAERS Safety Report 8196212-4 (Version None)
Quarter: 2012Q1

REPORT INFORMATION
  Report Type: 
  Country: None (occurrence: None)
  Receive Date: 20120307
  Receipt Date: 20120307
  Transmission Date: 20120608
  Serious: Yes (Other)
  Sender: FDA-Public Use
  Company Number: None

PATIENT
  Sex: Female

DRUGS (1)
  1. AMPYRA [Suspect]
     Indication: MULTIPLE SCLEROSIS
     Dosage: 10 MG BID ORAL
     Route: 048
     Dates: start: 20120208, end: 20120305

REACTIONS (6)
  - COGNITIVE DISORDER [None]
  - INSOMNIA [None]
  - FATIGUE [None]
  - FALL [None]
  - VOMITING [None]
  - DIZZINESS [None]
